FAERS Safety Report 5313134-4 (Version None)
Quarter: 2007Q2

REPORT INFORMATION
  Report Type: 
  Country: None (occurrence: None)
  Receive Date: 20070424
  Receipt Date: 20070409
  Transmission Date: 20071010
  Serious: Yes (Death)
  Sender: FDA-Public Use
  Company Number: 2007S1003092

PATIENT
  Age: 32 Year
  Sex: Male
  Weight: 104.3273 kg

DRUGS (10)
  1. LEXAPRO [Suspect]
     Indication: ANXIETY
     Dosage: 10 MG;DAILY;ORAL
     Route: 048
     Dates: start: 20030930, end: 20031009
  2. LEXAPRO [Suspect]
     Indication: DEPRESSION
     Dosage: 10 MG;DAILY;ORAL
     Route: 048
     Dates: start: 20030930, end: 20031009
  3. OXYCODONE HCL [Suspect]
  4. DIAZEPAM [Suspect]
  5. ZOLPIDEM [Suspect]
  6. MORPHINE [Suspect]
  7. HYDROCODONE BITARTRATE [Suspect]
  8. GLUCOPHAGE [Concomitant]
  9. DIOVAN [Concomitant]
  10. XANAX [Concomitant]

REACTIONS (22)
  - ABNORMAL BEHAVIOUR [None]
  - ANXIETY [None]
  - COMPLETED SUICIDE [None]
  - DIARRHOEA [None]
  - FATIGUE [None]
  - FEELING ABNORMAL [None]
  - GENERAL PHYSICAL HEALTH DETERIORATION [None]
  - INTENTIONAL SELF-INJURY [None]
  - LACERATION [None]
  - MULTIPLE DRUG OVERDOSE [None]
  - NAUSEA [None]
  - PULMONARY CONGESTION [None]
  - PULMONARY OEDEMA [None]
  - SELF-INJURIOUS IDEATION [None]
  - SLEEP DISORDER [None]
  - SOCIAL AVOIDANT BEHAVIOUR [None]
  - STRESS [None]
  - SUICIDAL IDEATION [None]
  - THINKING ABNORMAL [None]
  - TREMOR [None]
  - VISCERAL CONGESTION [None]
  - VOMITING [None]
